FAERS Safety Report 17158323 (Version 4)
Quarter: 2020Q1

REPORT INFORMATION
  Report Type: Spontaneous
  Country: US (occurrence: US)
  Receive Date: 20191216
  Receipt Date: 20200302
  Transmission Date: 20200409
  Serious: No
  Sender: FDA-Public Use
  Company Number: US-PFIZER INC-2019537723

PATIENT
  Age: 61 Year
  Sex: Male
  Weight: 86.17 kg

DRUGS (2)
  1. SILDENAFIL CITRATE. [Suspect]
     Active Substance: SILDENAFIL CITRATE
     Dosage: UNK (TABLET 5X DAILY)
     Dates: start: 20190618, end: 20190905
  2. SILDENAFIL CITRATE. [Suspect]
     Active Substance: SILDENAFIL CITRATE
     Indication: PULMONARY HYPERTENSION
     Dosage: 100 MG, 1X/DAY, (20 MG /TAKE ONE TABLET BY MOUTH FIVE TIMES PER DAY AS NEEDED OR AS DIRECTED)
     Route: 048
     Dates: start: 2018

REACTIONS (3)
  - Mental disorder [Unknown]
  - Drug ineffective [Not Recovered/Not Resolved]
  - Intentional product misuse [Unknown]

NARRATIVE: CASE EVENT DATE: 20190618
